FAERS Safety Report 25640743 (Version 2)
Quarter: 2025Q3

REPORT INFORMATION
  Report Type: Spontaneous
  Country: JP (occurrence: JP)
  Receive Date: 20250804
  Receipt Date: 20250829
  Transmission Date: 20251020
  Serious: Yes (Hospitalization)
  Sender: ELI LILLY AND COMPANY
  Company Number: JP-ELI_LILLY_AND_COMPANY-JP202507027839

PATIENT
  Age: 53 Year
  Sex: Male
  Weight: 81.3 kg

DRUGS (4)
  1. MOUNJARO [Suspect]
     Active Substance: TIRZEPATIDE
     Indication: Type 2 diabetes mellitus
     Route: 058
     Dates: start: 20240521
  2. MOUNJARO [Suspect]
     Active Substance: TIRZEPATIDE
     Route: 058
     Dates: start: 2024
  3. EMPAGLIFLOZIN [Concomitant]
     Active Substance: EMPAGLIFLOZIN
     Route: 065
  4. METFORMIN HYDROCHLORIDE [Concomitant]
     Active Substance: METFORMIN HYDROCHLORIDE
     Route: 065

REACTIONS (2)
  - Herpes zoster [Recovered/Resolved]
  - Muscle strain [Recovering/Resolving]

NARRATIVE: CASE EVENT DATE: 20240827
